FAERS Safety Report 24086469 (Version 4)
Quarter: 2024Q3

REPORT INFORMATION
  Report Type: Report from Study
  Country: US (occurrence: US)
  Receive Date: 20240712
  Receipt Date: 20240919
  Transmission Date: 20241017
  Serious: Yes (Other)
  Sender: NOVARTIS
  Company Number: US-002147023-NVSC2024US128545

PATIENT
  Sex: Female

DRUGS (1)
  1. KESIMPTA [Suspect]
     Active Substance: OFATUMUMAB
     Indication: Multiple sclerosis
     Dosage: 20 MG, ONCE A WEEK FOR 3 WEEKS, SKIP WEEK 4, WEEK 5 START MONTHLY
     Route: 058
     Dates: start: 20240527

REACTIONS (18)
  - Multiple sclerosis [Not Recovered/Not Resolved]
  - Optic nerve injury [Unknown]
  - Asthenia [Not Recovered/Not Resolved]
  - Grip strength decreased [Unknown]
  - Cough [Unknown]
  - Dyspnoea [Unknown]
  - Throat irritation [Unknown]
  - Muscle twitching [Unknown]
  - Dyskinesia [Unknown]
  - Rhinorrhoea [Unknown]
  - Fatigue [Unknown]
  - Feeling of body temperature change [Unknown]
  - Visual impairment [Unknown]
  - Ocular discomfort [Recovering/Resolving]
  - Hepatic enzyme increased [Unknown]
  - Pain in extremity [Unknown]
  - Feeling abnormal [Unknown]
  - Alopecia [Unknown]
